FAERS Safety Report 6549062-6 (Version None)
Quarter: 2010Q1

REPORT INFORMATION
  Report Type: 
  Country: None (occurrence: None)
  Receive Date: 20100125
  Receipt Date: 20100120
  Transmission Date: 20100710
  Serious: Yes (Death, Hospitalization)
  Sender: FDA-Public Use
  Company Number: MX-ROCHE-673733

PATIENT
  Sex: Female
  Weight: 53 kg

DRUGS (11)
  1. TOCILIZUMAB [Suspect]
     Indication: RHEUMATOID ARTHRITIS
     Dosage: ESCAPE ARM.
     Route: 042
     Dates: start: 20060817, end: 20060912
  2. BLINDED TOCILIZUMAB [Suspect]
     Indication: RHEUMATOID ARTHRITIS
     Dosage: DOSAGE FORM REPORTED AS INFUSION.
     Route: 042
     Dates: start: 20060324, end: 20060817
  3. METHOTREXATE [Concomitant]
     Indication: RHEUMATOID ARTHRITIS
     Route: 048
     Dates: start: 19970615
  4. FOLIC ACID [Concomitant]
     Indication: RHEUMATOID ARTHRITIS
     Route: 048
     Dates: start: 19970615
  5. MELOXICAM [Concomitant]
     Dates: start: 20060703
  6. DEFLAZACORT [Concomitant]
     Indication: RHEUMATOID ARTHRITIS
     Route: 048
     Dates: start: 20050915
  7. PARACETAMOL [Concomitant]
     Dates: start: 20060410
  8. PARACETAMOL [Concomitant]
     Dates: start: 20091209, end: 20100102
  9. CIPROFLOXACIN [Concomitant]
     Dates: start: 20091219, end: 20091230
  10. CIPROFLOXACIN [Concomitant]
     Dates: start: 20091231, end: 20100102
  11. HYDROCORTISON [Concomitant]
     Dosage: TOTAL DAILY DOSE WAS REPORTED AS 200 (UNITS: NOT REPORTED).
     Route: 042

REACTIONS (1)
  - SUBDURAL HAEMATOMA [None]
